FAERS Safety Report 16013987 (Version 2)
Quarter: 2019Q2

REPORT INFORMATION
  Report Type: Spontaneous
  Country: US (occurrence: US)
  Receive Date: 20190227
  Receipt Date: 20190503
  Transmission Date: 20190711
  Serious: No
  Sender: FDA-Public Use
  Company Number: US-009507513-1902USA006662

PATIENT
  Sex: Female

DRUGS (1)
  1. NEXPLANON [Suspect]
     Active Substance: ETONOGESTREL
     Dosage: 1 ROD SUBDERMALLY EVERY 3 YEARS
     Route: 059

REACTIONS (3)
  - Product quality issue [Unknown]
  - Device difficult to use [Unknown]
  - Complication of device insertion [Unknown]
